FAERS Safety Report 19276073 (Version 1)
Quarter: 2021Q2

REPORT INFORMATION
  Report Type: Spontaneous
  Country: JP (occurrence: JP)
  Receive Date: 20210519
  Receipt Date: 20210519
  Transmission Date: 20210717
  Serious: Yes (Death, Other)
  Sender: FDA-Public Use
  Company Number: JP-SUN PHARMACEUTICAL INDUSTRIES LTD-2021R1-297214

PATIENT
  Age: 72 Year
  Sex: Male

DRUGS (3)
  1. ACYCLOVIR. [Suspect]
     Active Substance: ACYCLOVIR
     Indication: VARICELLA ZOSTER VIRUS INFECTION
  2. NIFEDIPINE. [Suspect]
     Active Substance: NIFEDIPINE
     Indication: PRODUCT USED FOR UNKNOWN INDICATION
     Route: 065
  3. ACYCLOVIR. [Suspect]
     Active Substance: ACYCLOVIR
     Indication: HERPES SIMPLEX
     Dosage: 3.5 MILLIGRAM/KILOGRAM, DAILY
     Route: 065

REACTIONS (4)
  - Pemphigoid [Unknown]
  - Disseminated intravascular coagulation [Fatal]
  - Enterococcal infection [Fatal]
  - Bronchopulmonary aspergillosis [Fatal]
